FAERS Safety Report 5006165-5 (Version None)
Quarter: 2006Q1

REPORT INFORMATION
  Report Type: 
  Country: None (occurrence: None)
  Receive Date: 20060328
  Receipt Date: 20050601
  Transmission Date: 20060701
  Serious: Yes (Other)
  Sender: FDA-Public Use
  Company Number: K200500525

PATIENT
  Age: 75 Year
  Sex: Male

DRUGS (5)
  1. ALTACE [Suspect]
     Indication: HYPERTENSION
     Dosage: QD, ORAL
     Route: 048
     Dates: start: 20000101
  2. ZANTAC [Concomitant]
  3. ZOCOR [Concomitant]
  4. PRILOSEC [Concomitant]
  5. GLUCOPHAGE [Concomitant]

REACTIONS (3)
  - DEAFNESS [None]
  - DIZZINESS [None]
  - HEARING IMPAIRED [None]
